FAERS Safety Report 7636853-3 (Version None)
Quarter: 2011Q3

REPORT INFORMATION
  Report Type: 
  Country: None (occurrence: None)
  Receive Date: 20110726
  Receipt Date: 20110715
  Transmission Date: 20111222
  Serious: Yes (Other)
  Sender: FDA-Public Use
  Company Number: AU-JNJFOC-20110707795

PATIENT
  Sex: Female

DRUGS (1)
  1. MYLANTA 2 GO ORIGINAL [Suspect]
     Indication: PRODUCT USED FOR UNKNOWN INDICATION
     Dosage: 1 CHEWABLE TABLET ON TWO OCCASSIONS
     Route: 048
     Dates: start: 20110713, end: 20110714

REACTIONS (4)
  - URTICARIA [None]
  - AURICULAR SWELLING [None]
  - ASTHMA [None]
  - LIP SWELLING [None]
